FAERS Safety Report 17096773 (Version 1)
Quarter: 2019Q4

REPORT INFORMATION
  Report Type: Spontaneous
  Country: US (occurrence: US)
  Receive Date: 20191102
  Receipt Date: 20191102
  Transmission Date: 20200122
  Serious: Yes (Hospitalization)
  Sender: FDA-Public Use
  Company Number: None

PATIENT
  Age: 72 Year
  Sex: Female
  Weight: 80 kg

DRUGS (2)
  1. CEPHALEXIN. [Concomitant]
     Active Substance: CEPHALEXIN
  2. OLANZAPINE. [Suspect]
     Active Substance: OLANZAPINE
     Dates: end: 20191021

REACTIONS (7)
  - Abdominal pain [None]
  - Pain [None]
  - Lethargy [None]
  - Diverticulitis [None]
  - Hiatus hernia [None]
  - Eye pain [None]
  - Leukopenia [None]

NARRATIVE: CASE EVENT DATE: 20191026
